FAERS Safety Report 12859359 (Version 3)
Quarter: 2017Q2

REPORT INFORMATION
  Report Type: Report from Study
  Country: US (occurrence: US)
  Receive Date: 20161018
  Receipt Date: 20170608
  Transmission Date: 20170830
  Serious: No
  Sender: FDA-Public Use
  Company Number: PHEH2016US026843

PATIENT
  Age: 30 Year
  Sex: Female
  Weight: 77.1 kg

DRUGS (2)
  1. ILARIS [Suspect]
     Active Substance: CANAKINUMAB
     Dosage: 150 MG, UNK
     Route: 058
     Dates: start: 20170504
  2. ILARIS [Suspect]
     Active Substance: CANAKINUMAB
     Indication: CRYOPYRIN ASSOCIATED PERIODIC SYNDROME
     Dosage: 150 MG, EVERY 2 MONTHS
     Route: 058
     Dates: start: 20170309

REACTIONS (6)
  - Pyrexia [Unknown]
  - Lacrimation increased [Unknown]
  - Oropharyngeal pain [Unknown]
  - Throat irritation [Unknown]
  - Sneezing [Unknown]
  - Food allergy [Unknown]

NARRATIVE: CASE EVENT DATE: 20170309
